FAERS Safety Report 24093170 (Version 2)
Quarter: 2024Q3

REPORT INFORMATION
  Report Type: Report from Study
  Country: JP (occurrence: JP)
  Receive Date: 20240715
  Receipt Date: 20240723
  Transmission Date: 20241017
  Serious: Yes (Death, Other)
  Sender: TAKEDA
  Company Number: JP-OTSUKA-2024_019341

PATIENT
  Age: 16 Year
  Sex: Female
  Weight: 60.4 kg

DRUGS (9)
  1. PONATINIB [Suspect]
     Active Substance: PONATINIB
     Indication: Product used for unknown indication
     Dosage: 30 MILLIGRAM, QD
     Route: 048
     Dates: start: 20240704, end: 20240705
  2. PONATINIB [Suspect]
     Active Substance: PONATINIB
     Dosage: 45 MILLIGRAM, QD
     Route: 048
     Dates: start: 20240606, end: 20240626
  3. MAGNESIUM OXIDE [Concomitant]
     Active Substance: MAGNESIUM OXIDE
     Indication: Constipation
     Dosage: 1980 MILLIGRAM, TID
     Route: 048
     Dates: start: 20240606, end: 20240705
  4. BEPOTASTINE BESYLATE [Concomitant]
     Active Substance: BEPOTASTINE BESYLATE
     Indication: Eczema
     Dosage: 20 MILLIGRAM, BID
     Route: 048
     Dates: start: 20240613, end: 20240705
  5. DICLOFENAC SODIUM [Concomitant]
     Active Substance: DICLOFENAC\DICLOFENAC SODIUM
     Indication: Pain
     Dosage: 50 MILLIGRAM, BID
     Route: 048
     Dates: start: 20240613, end: 20240705
  6. SENNOSIDES A AND B [Concomitant]
     Active Substance: SENNOSIDES A AND B
     Indication: Constipation
     Dosage: 12 MILLIGRAM
     Route: 048
     Dates: start: 20240613, end: 20240705
  7. URSODIOL [Concomitant]
     Active Substance: URSODIOL
     Indication: Hepatic function abnormal
     Dosage: 300 MILLIGRAM, TID
     Route: 048
     Dates: start: 20240627, end: 20240705
  8. CARBOCYSTEINE [Concomitant]
     Active Substance: CARBOCYSTEINE
     Indication: Productive cough
     Dosage: 1500 MILLIGRAM, TID
     Route: 048
     Dates: start: 20240704, end: 20240705
  9. LEVOFLOXACIN [Concomitant]
     Active Substance: LEVOFLOXACIN
     Indication: Pneumonia
     Dosage: 500 MILLIGRAM, QD
     Route: 048
     Dates: start: 20240704, end: 20240705

REACTIONS (1)
  - Death [Fatal]

NARRATIVE: CASE EVENT DATE: 20240706
